FAERS Safety Report 8185879-2 (Version None)
Quarter: 2012Q1

REPORT INFORMATION
  Report Type: 
  Country: None (occurrence: None)
  Receive Date: 20120305
  Receipt Date: 20120224
  Transmission Date: 20120608
  Serious: Yes (Hospitalization, Other)
  Sender: FDA-Public Use
  Company Number: US-ROCHE-794541

PATIENT
  Sex: Male
  Weight: 106.69 kg

DRUGS (1)
  1. ACCUTANE [Suspect]
     Indication: ACNE
     Route: 065
     Dates: start: 19860528, end: 19870131

REACTIONS (9)
  - HYPERCHOLESTEROLAEMIA [None]
  - IRRITABLE BOWEL SYNDROME [None]
  - LARGE INTESTINE PERFORATION [None]
  - INFLAMMATORY BOWEL DISEASE [None]
  - COLONIC POLYP [None]
  - PANIC DISORDER [None]
  - CROHN'S DISEASE [None]
  - INFECTIOUS PERITONITIS [None]
  - INTESTINAL HAEMORRHAGE [None]
